FAERS Safety Report 5277764-0 (Version None)
Quarter: 2007Q1

REPORT INFORMATION
  Report Type: 
  Country: None (occurrence: None)
  Receive Date: 20070327
  Receipt Date: 20070315
  Transmission Date: 20070707
  Serious: Yes (Hospitalization, Other)
  Sender: FDA-Public Use
  Company Number: US-PFIZER INC-2005132315

PATIENT
  Sex: Female

DRUGS (1)
  1. NEURONTIN [Suspect]
     Indication: DEPRESSION

REACTIONS (6)
  - DRUG INEFFECTIVE [None]
  - FIBROMYALGIA [None]
  - GENERALISED ANXIETY DISORDER [None]
  - OVERDOSE [None]
  - PANIC ATTACK [None]
  - SUICIDE ATTEMPT [None]
